FAERS Safety Report 4838101-6 (Version None)
Quarter: 2005Q4

REPORT INFORMATION
  Report Type: 
  Country: None (occurrence: None)
  Receive Date: 20051123
  Receipt Date: 20051123
  Transmission Date: 20060501
  Serious: Yes (Hospitalization)
  Sender: FDA-Public Use
  Company Number: None

PATIENT
  Age: 53 Year
  Sex: Female

DRUGS (1)
  1. WARFARIN [Suspect]
     Indication: DEEP VEIN THROMBOSIS
     Dosage: 2.5MG WF , 5.0MG TT SS
     Dates: start: 20050620

REACTIONS (2)
  - HEADACHE [None]
  - INTERNATIONAL NORMALISED RATIO INCREASED [None]
